FAERS Safety Report 7340454-4 (Version None)
Quarter: 2011Q1

REPORT INFORMATION
  Report Type: 
  Country: None (occurrence: None)
  Receive Date: 20110309
  Receipt Date: 20110210
  Transmission Date: 20110831
  Serious: No
  Sender: FDA-Public Use
  Company Number: US-B.I. PHARMACEUTICALS,INC./RIDGEFIELD-2011-BP-00204BP

PATIENT
  Sex: Male

DRUGS (6)
  1. TOPROL-XL [Concomitant]
  2. DITROPAN [Concomitant]
  3. AMIODARONE [Concomitant]
  4. PROTONIX [Concomitant]
  5. PRADAXA [Suspect]
     Indication: ATRIAL FIBRILLATION
     Dosage: 300 MG
     Route: 048
     Dates: start: 20101214
  6. RYTHMOL [Suspect]

REACTIONS (2)
  - FATIGUE [None]
  - RESPIRATORY DISORDER [None]
